FAERS Safety Report 9103306 (Version 1)
Quarter: 2013Q1

REPORT INFORMATION
  Report Type: Report from Study
  Country: CH (occurrence: CH)
  Receive Date: 20130218
  Receipt Date: 20130218
  Transmission Date: 20140127
  Serious: Yes (Hospitalization)
  Sender: FDA-Public Use
  Company Number: CH-ROCHE-1188514

PATIENT
  Age: 68 None
  Sex: Male

DRUGS (6)
  1. CEFTRIAXONE [Suspect]
     Indication: MALIGNANT MELANOMA
     Route: 065
     Dates: start: 20110413
  2. IPILIMUMAB [Suspect]
     Indication: MALIGNANT MELANOMA
     Dosage: LAST DOSE PRIOR TO SAE ON 18/MAR/2011
     Route: 042
     Dates: start: 20110124
  3. LANTUS [Concomitant]
  4. MARCOUMAR [Concomitant]
  5. HUMALOG [Concomitant]
  6. DIFLUCAN [Concomitant]
     Route: 065
     Dates: start: 20110410, end: 20110411

REACTIONS (5)
  - Cystitis [Unknown]
  - Alanine aminotransferase increased [Recovered/Resolved]
  - Aspartate aminotransferase increased [Recovered/Resolved]
  - Laryngitis [Recovered/Resolved]
  - Secondary adrenocortical insufficiency [Unknown]
